FAERS Safety Report 24385835 (Version 1)
Quarter: 2024Q4

REPORT INFORMATION
  Report Type: Spontaneous
  Country: US (occurrence: US)
  Receive Date: 20241001
  Receipt Date: 20241001
  Transmission Date: 20250115
  Serious: Yes (Death, Life-Threatening, Hospitalization, Other)
  Sender: SANOFI AVENTIS
  Company Number: US-SA-2024SA281327

PATIENT
  Age: 77 Year
  Sex: Male

DRUGS (1)
  1. ALEMTUZUMAB [Suspect]
     Active Substance: ALEMTUZUMAB
     Indication: T-cell prolymphocytic leukaemia

REACTIONS (11)
  - Histoplasmosis disseminated [Fatal]
  - Haemodynamic instability [Fatal]
  - Chills [Fatal]
  - Fatigue [Fatal]
  - Diarrhoea [Fatal]
  - Pyrexia [Fatal]
  - Cough [Fatal]
  - Lymphadenopathy mediastinal [Fatal]
  - Mental disorder [Fatal]
  - Dyspnoea [Fatal]
  - Off label use [Unknown]
